FAERS Safety Report 10170583 (Version 3)
Quarter: 2014Q2

REPORT INFORMATION
  Report Type: Report from Study
  Country: US (occurrence: US)
  Receive Date: 20140513
  Receipt Date: 20140607
  Transmission Date: 20141212
  Serious: Yes (Other)
  Sender: FDA-Public Use
  Company Number: PHHO2014US006948

PATIENT
  Age: 59 Year
  Sex: Female
  Weight: 59 kg

DRUGS (5)
  1. GILENYA [Suspect]
     Indication: RELAPSING-REMITTING MULTIPLE SCLEROSIS
     Dosage: DOSE BLINDED
     Route: 048
     Dates: start: 20130802
  2. PROZAC [Concomitant]
     Indication: DEPRESSION
     Dosage: 20 MG, UNK
     Dates: start: 20130201
  3. DICLOFENAC [Concomitant]
     Dosage: 75 MG, UNK
     Dates: start: 20130419
  4. NABUMETONE [Concomitant]
     Indication: PAIN
     Dosage: 750 MG, UNK
     Dates: start: 20130520
  5. KRILL OIL [Concomitant]
     Indication: SUPPLEMENTATION THERAPY
     Dosage: 1 DF (CAP), UNK
     Dates: start: 20120101

REACTIONS (1)
  - Basal cell carcinoma [Recovered/Resolved]
